FAERS Safety Report 11009636 (Version 1)
Quarter: 2015Q2

REPORT INFORMATION
  Report Type: Spontaneous
  Country: US (occurrence: US)
  Receive Date: 20150410
  Receipt Date: 20150410
  Transmission Date: 20150821
  Serious: No
  Sender: FDA-Public Use
  Company Number: US-BEH-2013039311

PATIENT
  Age: 28 Year
  Sex: Female

DRUGS (3)
  1. RHOPHYLAC [Suspect]
     Active Substance: HUMAN RHO(D) IMMUNE GLOBULIN
     Dosage: 300 MCG
     Dates: start: 20131126
  2. RHOPHYLAC [Suspect]
     Active Substance: HUMAN RHO(D) IMMUNE GLOBULIN
     Dosage: 300 MCG
     Dates: start: 20131126
  3. RHOPHYLAC [Suspect]
     Active Substance: HUMAN RHO(D) IMMUNE GLOBULIN
     Indication: FOETAL-MATERNAL HAEMORRHAGE
     Dosage: 300 MCG
     Dates: start: 20131127

REACTIONS (1)
  - Rhesus antibodies positive [Unknown]

NARRATIVE: CASE EVENT DATE: 20131129
